FAERS Safety Report 10972549 (Version 2)
Quarter: 2015Q2

REPORT INFORMATION
  Report Type: Spontaneous
  Country: US (occurrence: US)
  Receive Date: 20150331
  Receipt Date: 20150525
  Transmission Date: 20150821
  Serious: No
  Sender: FDA-Public Use
  Company Number: US-JNJFOC-20130106727

PATIENT
  Sex: Female

DRUGS (2)
  1. THORAZINE [Concomitant]
     Active Substance: CHLORPROMAZINE
     Dosage: AT PM
     Route: 065
  2. RISPERDAL CONSTA [Suspect]
     Active Substance: RISPERIDONE
     Indication: SCHIZOPHRENIA
     Route: 030
     Dates: start: 20120224

REACTIONS (4)
  - Foreign body [Unknown]
  - Device malfunction [Unknown]
  - Feeling abnormal [Unknown]
  - Underdose [Not Recovered/Not Resolved]

NARRATIVE: CASE EVENT DATE: 2012
